FAERS Safety Report 23973271 (Version 4)
Quarter: 2024Q3

REPORT INFORMATION
  Report Type: Spontaneous
  Country: US (occurrence: US)
  Receive Date: 20240613
  Receipt Date: 20240726
  Transmission Date: 20241016
  Serious: No
  Sender: NOVARTIS
  Company Number: US-002147023-NVSC2024US124307

PATIENT
  Age: 72 Year
  Sex: Female
  Weight: 67.5 kg

DRUGS (25)
  1. LEQVIO [Suspect]
     Active Substance: INCLISIRAN SODIUM
     Indication: Hyperlipidaemia
     Dosage: 284 MG/KG (LIQUID) (INITIAL, 3 MONTHS, THEN EVERY 6 MONTHS) (1.5 MG/ML)
     Route: 030
     Dates: start: 20240327, end: 20240328
  2. LEQVIO [Suspect]
     Active Substance: INCLISIRAN SODIUM
     Indication: Coronary artery disease
  3. CIPROFLOXACIN [Concomitant]
     Active Substance: CIPROFLOXACIN
     Indication: Product used for unknown indication
     Dosage: UNK
     Route: 065
  4. ACETAMINOPHEN [Concomitant]
     Active Substance: ACETAMINOPHEN
     Indication: Product used for unknown indication
     Dosage: UNK
     Route: 065
  5. LISINOPRIL [Concomitant]
     Active Substance: LISINOPRIL
     Indication: Product used for unknown indication
     Dosage: UNK
     Route: 065
  6. B COMPLEX WITH VITAMIN C [Concomitant]
     Indication: Product used for unknown indication
     Dosage: 1 DOSAGE FORM (2 TIMES A WEEK)
     Route: 048
  7. CETIRIZINE [Concomitant]
     Active Substance: CETIRIZINE HYDROCHLORIDE
     Indication: Product used for unknown indication
     Dosage: 10 MG (30 TABLET)
     Route: 048
  8. DICLOFENAC SODIUM [Concomitant]
     Active Substance: DICLOFENAC\DICLOFENAC SODIUM
     Indication: Pain
     Dosage: 2 G (TOPICALLY IF NEEDED IN THE MORNING, AT NOON, IN THE EVENING, AND AT BEDTIME)
     Route: 065
  9. DOXAZOSIN [Concomitant]
     Active Substance: DOXAZOSIN MESYLATE
     Indication: Product used for unknown indication
     Dosage: 2 MG, QD (TAKE 1 TABLET (2 MG) BY MOUTH AT BEDTIME)
     Route: 048
  10. ESOMEPRAZOLE [Concomitant]
     Active Substance: ESOMEPRAZOLE
     Indication: Product used for unknown indication
     Dosage: (TAKE 1 CAPSULE (20 MG) BY MOUTH BEFORE BREAKFAST)
     Route: 048
  11. EZETIMIBE [Concomitant]
     Active Substance: EZETIMIBE
     Indication: Product used for unknown indication
     Dosage: 10 DOSAGE FORM, QD (TAKE 1 TABLET (10 MG) BY MOUTH AT THE SAME TIME EACH DAY)
     Route: 048
  12. FLUOROMETHOLONE [Concomitant]
     Active Substance: FLUOROMETHOLONE
     Indication: Product used for unknown indication
     Dosage: 1 DRP ADMINISTER 1 DROP INTO BOTH EYES IN THE MORNING, AT NOON, AND AT BEDTIME FOR 14 DAYS)
     Route: 047
  13. FLUTICASONE [Concomitant]
     Active Substance: FLUTICASONE
     Indication: Product used for unknown indication
     Dosage: UNK (50 MCG/ACT NASAL SPRAY, INSTILL 2 SPRAYS IN EACH NOSTRIL DAILY)
     Route: 045
  14. HYDROCHLOROTHIAZIDE [Concomitant]
     Active Substance: HYDROCHLOROTHIAZIDE
     Indication: Product used for unknown indication
     Dosage: 25 MG (TAKE 1 TABLET (25 MG) BY MOUTH IN THE MORNING)
     Route: 048
  15. KETOTIFEN [Concomitant]
     Active Substance: KETOTIFEN
     Indication: Product used for unknown indication
     Dosage: 1 DRP (ADMINISTER 1 DROP INTO BOTH EYES IF NEEDED IN THE MORNING AND AT BEDTIME)
     Route: 047
  16. COZAAR [Concomitant]
     Active Substance: LOSARTAN POTASSIUM
     Indication: Product used for unknown indication
     Dosage: 100 MG (TAKE 1 TABLET (100 MG) BY MOUTH AT THE SAME TIME EACH DAY)
     Route: 048
  17. MAGNESIUM [Concomitant]
     Active Substance: MAGNESIUM
     Indication: Product used for unknown indication
     Dosage: 500 MG (TAKE 500 MG BY MOUTH AT THE SAME TIME EACH DAY.)
     Route: 065
  18. SINGULAIR [Concomitant]
     Active Substance: MONTELUKAST SODIUM
     Indication: Product used for unknown indication
     Dosage: 10 MG (TAKE 1 TABLET (10 MG) BY MOUTH IN THE EVENING)
     Route: 048
  19. NEBIVOLOL [Concomitant]
     Active Substance: NEBIVOLOL
     Indication: Product used for unknown indication
     Dosage: 2.5 MG (TAKE 1 TABLET (2.5 MG) BY MOUTH AT THE SAME TIME EACH DAY)
     Route: 048
  20. OMEPRAZOLE [Concomitant]
     Active Substance: OMEPRAZOLE
     Indication: Product used for unknown indication
     Dosage: 20 MG (TAKE 1 CAPSULE (20 MG) BY MOUTH AT THE SAME TIME EACH DAY)
     Route: 048
  21. CRESTOR [Concomitant]
     Active Substance: ROSUVASTATIN CALCIUM
     Indication: Product used for unknown indication
     Dosage: 40 MG (TAKE 1 TABLET (40 MG) BY MOUTH AT THE SAME TIME EACH DAY)
     Route: 048
  22. ALDACTONE [Concomitant]
     Active Substance: SPIRONOLACTONE
     Indication: Product used for unknown indication
     Dosage: (30 TABLET) 25 MG (TAKE 1 TABLET (25 RNG) BY RNOUTH AT THE SAME TIME EACH DAY)
     Route: 048
  23. RESTORIL [Concomitant]
     Active Substance: TEMAZEPAM
     Indication: Product used for unknown indication
     Dosage: 15 MG (TAKE ONE CAPSULE BY MOUTH EVERY DAY AT BEDTIME AS NEEDED FOR SLEEP)
     Route: 048
  24. ZINC GLUCONATE [Concomitant]
     Active Substance: ZINC GLUCONATE
     Indication: Product used for unknown indication
     Dosage: 50 MG (TAKE 1 TABLET (50 MG) BY MOUTH AT THE SAME TIME EACH DAY)
     Route: 048
  25. PROLIA [Concomitant]
     Active Substance: DENOSUMAB
     Indication: Product used for unknown indication
     Dosage: 60 MILLIGRAM PER MILLILITRE ((60 MG) UNDER THE SKIN 1 (ONE) TIRNE FOR 1 DOSE)
     Route: 065

REACTIONS (6)
  - Pain [Unknown]
  - Dyspnoea [Recovered/Resolved]
  - Chest pain [Recovered/Resolved]
  - Fatigue [Recovered/Resolved]
  - Headache [Recovered/Resolved]
  - Dizziness [Recovered/Resolved]

NARRATIVE: CASE EVENT DATE: 20240327
